FAERS Safety Report 9514769 (Version 1)
Quarter: 2013Q1

REPORT INFORMATION
  Report Type: Spontaneous
  Country: US (occurrence: None)
  Receive Date: 20130305
  Receipt Date: 20130305
  Transmission Date: 20140127
  Serious: Yes (Other)
  Sender: FDA-Public Use
  Company Number: 163-21880-12123151

PATIENT
  Age: 74 Year
  Sex: Female

DRUGS (9)
  1. REVLIMID [Suspect]
     Indication: PLASMA CELL MYELOMA
     Dosage: 10 MG, 21 IN 21 D, PO
     Route: 048
     Dates: start: 20121207
  2. ACYCLOVIR (ACICLOVIR) (UNKNOWN) [Concomitant]
  3. AMLODIPINE BESYLATE (AMLODIPINE BESILATE) (UNKNOWN) [Concomitant]
  4. ATENOLOL (ATENOLOL) (UNKNOWN) [Concomitant]
  5. ATORVASTATIN CALCIUM (ATORVASTATIN CALCIUM) (UNKNOWN) [Concomitant]
  6. CALCIUM + D (OS-CAL) (UNKNOWN) [Concomitant]
  7. ECOTRIN LOW STRENGTH (ACETYLSALICYLIC ACID) (UNKNOWN) [Concomitant]
  8. LEVOTHYROXINE SODIUM (LEVOTHYROXINE SODIUM) (UNKNOWN) [Concomitant]
  9. LIPITOR (ATORAVASTATIN) (UNKNOWN) [Concomitant]

REACTIONS (4)
  - Hypersensitivity [None]
  - Pruritus generalised [None]
  - Arthralgia [None]
  - Nausea [None]
